FAERS Safety Report 20172364 (Version 1)
Quarter: 2021Q4

REPORT INFORMATION
  Report Type: Spontaneous
  Country: US (occurrence: US)
  Receive Date: 20211210
  Receipt Date: 20211210
  Transmission Date: 20220303
  Serious: Yes (Hospitalization)
  Sender: FDA-Public Use
  Company Number: USA-CUMBERLAND-2021-US-000024

PATIENT
  Age: 45 Year
  Sex: Female

DRUGS (3)
  1. REDITREX [Suspect]
     Active Substance: METHOTREXATE
  2. PREDNISONE [Concomitant]
     Active Substance: PREDNISONE
  3. RITUXIMAB [Concomitant]
     Active Substance: RITUXIMAB

REACTIONS (1)
  - COVID-19 [Recovered/Resolved]
